FAERS Safety Report 4434534-0 (Version None)
Quarter: 2004Q3

REPORT INFORMATION
  Report Type: 
  Country: None (occurrence: None)
  Receive Date: 20040721
  Receipt Date: 20040412
  Transmission Date: 20050211
  Serious: No
  Sender: FDA-Public Use
  Company Number: 30019315-C594580-1

PATIENT
  Age: 43 Year
  Sex: Female

DRUGS (16)
  1. EXTRANEAL [Suspect]
     Indication: PERITONEAL DIALYSIS
     Dosage: 7.5% ICODEXTRIN 2L QD; IP
     Route: 033
     Dates: start: 20040329, end: 20040409
  2. DIANEAL LO/CAL [Concomitant]
  3. DIANEAL L0/CAL [Concomitant]
  4. NEPHROCAPS [Concomitant]
  5. FESO4 [Concomitant]
  6. INSULIN NOVALIN [Concomitant]
  7. FOLIC ACID [Concomitant]
  8. LOVASTATIN [Concomitant]
  9. CALCITRIOL [Concomitant]
  10. MEDROXYPROGESTERONE ACETATE [Concomitant]
  11. ARANESP [Concomitant]
  12. COLACE [Concomitant]
  13. MONOPRIL [Concomitant]
  14. METOPROLOL [Concomitant]
  15. BACTROBAN [Concomitant]
  16. LASIX [Concomitant]

REACTIONS (2)
  - PRURITUS [None]
  - RASH ERYTHEMATOUS [None]
